FAERS Safety Report 7408270-2 (Version None)
Quarter: 2011Q2

REPORT INFORMATION
  Report Type: 
  Country: None (occurrence: None)
  Receive Date: 20110401
  Receipt Date: 20110329
  Transmission Date: 20111010
  Serious: Yes (Hospitalization)
  Sender: FDA-Public Use
  Company Number: WAES 1103USA03676

PATIENT
  Age: 69 Year
  Sex: Female

DRUGS (8)
  1. INJ ELOTUZUMAB UNK [Suspect]
     Indication: MULTIPLE MYELOMA
     Dosage: 10 MG/KG/DAILY/IV
     Route: 042
     Dates: start: 20110111, end: 20110111
  2. ACIPHEX [Concomitant]
  3. DEXAMETHASONE [Suspect]
     Indication: MULTIPLE MYELOMA
     Dosage: DAILY/PO
     Route: 048
     Dates: start: 20110118, end: 20110118
  4. ASPIRIN [Concomitant]
  5. TEMAZEPAM [Concomitant]
  6. LENALIDOMIDE [Suspect]
     Indication: MULTIPLE MYELOMA
     Dosage: 25 MG/DAILY/PO
     Route: 048
     Dates: start: 20110122, end: 20110122
  7. BYSTOLIC [Concomitant]
  8. HYDROCHLOROTHIAZIDE [Concomitant]

REACTIONS (6)
  - CELLULITIS [None]
  - PNEUMONIA [None]
  - ATRIAL FIBRILLATION [None]
  - HYPOXIA [None]
  - INFLUENZA [None]
  - HYPOTENSION [None]
